FAERS Safety Report 4846316-6 (Version None)
Quarter: 2005Q4

REPORT INFORMATION
  Report Type: 
  Country: None (occurrence: None)
  Receive Date: 20051115
  Receipt Date: 20050928
  Transmission Date: 20060501
  Serious: Yes (Hospitalization)
  Sender: FDA-Public Use
  Company Number: 419460

PATIENT
  Age: 59 Year
  Sex: Female
  Weight: 95.3 kg

DRUGS (4)
  1. PEGASYS [Suspect]
     Indication: HEPATITIS C
     Dosage: 180 MCG 1 PER WEEK SUBCUTANEOUS
     Route: 058
     Dates: start: 20050320, end: 20050821
  2. COPEGUS [Suspect]
     Indication: HEPATITIS C
     Dosage: 1200 MG DAILY ORAL
     Route: 048
     Dates: start: 20050320, end: 20050821
  3. DIOVAN [Concomitant]
  4. LEXAPRO [Concomitant]

REACTIONS (3)
  - ABDOMINAL DISTENSION [None]
  - ASCITES [None]
  - CELLULITIS [None]
